FAERS Safety Report 9718240 (Version 1)
Quarter: 2013Q4

REPORT INFORMATION
  Report Type: Spontaneous
  Country: US (occurrence: US)
  Receive Date: 20131125
  Receipt Date: 20131125
  Transmission Date: 20140711
  Serious: No
  Sender: FDA-Public Use
  Company Number: US-VIVUS-2013V1000092

PATIENT
  Sex: Female

DRUGS (5)
  1. QSYMIA 15MG/92MG [Suspect]
     Indication: OBESITY
     Dosage: DAILY DOSE: 1 CAPSULE,
     Route: 048
     Dates: start: 2013, end: 2013
  2. QSYMIA 11.25MG/69MG [Suspect]
     Indication: OBESITY
     Dosage: DAILY DOSE: 1 CAPSULE,
     Route: 048
     Dates: start: 2013
  3. QSYMIA 11.25MG/69MG [Suspect]
     Dosage: DAILY DOSE: 1 CAPSULE,
     Route: 048
  4. QSYMIA 7.5MG/46MG [Suspect]
     Indication: OBESITY
     Dosage: DAILY DOSE: 1 CAPSULE,
     Route: 048
  5. QSYMIA 3.75MG/23MG [Suspect]
     Indication: OBESITY
     Dosage: DAILY DOSE: 1 CAPSULE,
     Route: 048

REACTIONS (3)
  - Tremor [Unknown]
  - Dysphemia [Unknown]
  - Speech disorder [Unknown]
